FAERS Safety Report 14248282 (Version 1)
Quarter: 2017Q4

REPORT INFORMATION
  Report Type: Spontaneous
  Country: US (occurrence: US)
  Receive Date: 20171204
  Receipt Date: 20171204
  Transmission Date: 20180321
  Serious: Yes (Death, Hospitalization, Other)
  Sender: FDA-Public Use
  Company Number: US-GLAXOSMITHKLINE-US2017GSK183368

PATIENT
  Age: 34 Year
  Sex: Female

DRUGS (4)
  1. AMITRIPTYLINE [Suspect]
     Active Substance: AMITRIPTYLINE
     Route: 048
  2. BUPROPION. [Suspect]
     Active Substance: BUPROPION
     Route: 048
  3. ALCOHOL. [Suspect]
     Active Substance: ALCOHOL
     Dosage: UNK
     Route: 048
  4. CITALOPRAM [Suspect]
     Active Substance: CITALOPRAM HYDROBROMIDE
     Dosage: UNK
     Route: 048

REACTIONS (2)
  - Completed suicide [Fatal]
  - Overdose [Fatal]
